FAERS Safety Report 7758960-7 (Version None)
Quarter: 2011Q3

REPORT INFORMATION
  Report Type: 
  Country: None (occurrence: None)
  Receive Date: 20110919
  Receipt Date: 20110909
  Transmission Date: 20111222
  Serious: Yes (Life-Threatening, Congenital Anomaly)
  Sender: FDA-Public Use
  Company Number: CZ-ASTELLAS-2011EU006224

PATIENT
  Sex: Male

DRUGS (1)
  1. PROTOPIC [Suspect]
     Indication: MATERNAL EXPOSURE DURING PREGNANCY
     Dosage: 0.1 %, UNKNOWN/D
     Route: 064

REACTIONS (1)
  - CONGENITAL DIAPHRAGMATIC HERNIA [None]
